FAERS Safety Report 5199859-2 (Version None)
Quarter: 2007Q1

REPORT INFORMATION
  Report Type: 
  Country: None (occurrence: None)
  Receive Date: 20070105
  Receipt Date: 20061228
  Transmission Date: 20070707
  Serious: Yes (Hospitalization)
  Sender: FDA-Public Use
  Company Number: US-AMGEN-US204958

PATIENT
  Sex: Male
  Weight: 11.5 kg

DRUGS (4)
  1. KINERET [Suspect]
     Indication: JUVENILE ARTHRITIS
     Route: 058
     Dates: start: 20061107, end: 20061224
  2. PREDNISOLONE [Concomitant]
     Dates: start: 20061016
  3. ZANTAC [Concomitant]
     Route: 048
     Dates: start: 20061019, end: 20061117
  4. PRILOSEC [Concomitant]
     Route: 048
     Dates: start: 20061117

REACTIONS (2)
  - ALANINE AMINOTRANSFERASE INCREASED [None]
  - ASPARTATE AMINOTRANSFERASE INCREASED [None]
